FAERS Safety Report 5626406-0 (Version None)
Quarter: 2008Q1

REPORT INFORMATION
  Report Type: 
  Country: None (occurrence: None)
  Receive Date: 20080211
  Receipt Date: 20080131
  Transmission Date: 20080703
  Serious: Yes (Hospitalization)
  Sender: FDA-Public Use
  Company Number: 0SCN-NO-0712S-0518

PATIENT
  Age: 64 Year
  Sex: Female

DRUGS (4)
  1. OMNISCAN [Suspect]
     Indication: BREAST NEOPLASM
     Dosage: 15 ML, SINGLE DOSE, I.V.
     Route: 042
     Dates: start: 20071225, end: 20071225
  2. OMNISCAN [Suspect]
     Indication: BREAST NEOPLASM
     Dosage: 15 ML, SINGLE DOSE, I.V.
     Route: 042
     Dates: start: 20071226, end: 20071226
  3. PHENOBARBITAL (PHENOBAL) [Concomitant]
  4. DIAZEPAM (CERCINE) [Concomitant]

REACTIONS (4)
  - BLOOD PRESSURE SYSTOLIC INCREASED [None]
  - CONVULSION [None]
  - NERVOUS SYSTEM DISORDER [None]
  - RESPIRATORY DEPRESSION [None]
